FAERS Safety Report 20228282 (Version 4)
Quarter: 2022Q2

REPORT INFORMATION
  Report Type: Spontaneous
  Country: JP (occurrence: JP)
  Receive Date: 20211224
  Receipt Date: 20220615
  Transmission Date: 20220721
  Serious: Yes (Hospitalization, Disabling, Other)
  Sender: FDA-Public Use
  Company Number: JP-BRISTOL-MYERS SQUIBB COMPANY-BMS-2021-060953

PATIENT
  Age: 69 Year
  Sex: Female
  Weight: 49.4 kg

DRUGS (4)
  1. YERVOY [Suspect]
     Active Substance: IPILIMUMAB
     Indication: Non-small cell lung cancer recurrent
     Dosage: 46.9 MG
     Route: 041
     Dates: start: 20210525, end: 20210525
  2. OPDIVO [Suspect]
     Active Substance: NIVOLUMAB
     Indication: Non-small cell lung cancer recurrent
     Dosage: 360 MILLIGRAM, TOTAL NUMBER OF DOSES: 1
     Route: 041
     Dates: start: 20210525, end: 20210525
  3. CARBOPLATIN [Suspect]
     Active Substance: CARBOPLATIN
     Indication: Non-small cell lung cancer recurrent
     Dosage: 300 MILLIGRAM, ONE TIME DOSE
     Route: 041
     Dates: start: 20210525, end: 20210525
  4. PACLITAXEL [Suspect]
     Active Substance: PACLITAXEL
     Indication: Non-small cell lung cancer recurrent
     Dosage: 285 MILLIGRAM, ONE TIME DOSE
     Route: 041
     Dates: start: 20210525, end: 20210525

REACTIONS (4)
  - Neuropathy peripheral [Recovered/Resolved]
  - Facial paralysis [Recovered/Resolved]
  - Cerebral infarction [Recovered/Resolved with Sequelae]
  - Immune-mediated dermatitis [Recovered/Resolved]

NARRATIVE: CASE EVENT DATE: 20210603
